FAERS Safety Report 9373189 (Version 2)
Quarter: 2013Q3

REPORT INFORMATION
  Report Type: Spontaneous
  Country: FR (occurrence: FR)
  Receive Date: 20130627
  Receipt Date: 20130801
  Transmission Date: 20140515
  Serious: Yes (Life-Threatening, Hospitalization)
  Sender: FDA-Public Use
  Company Number: FR-TEVA-415400ISR

PATIENT
  Age: 85 Year
  Sex: Male

DRUGS (1)
  1. FUROSEMIDE TEVA [Suspect]
     Indication: CARDIAC FAILURE
     Dosage: 120 MILLIGRAM DAILY;
     Route: 048
     Dates: start: 20130513, end: 20130604

REACTIONS (6)
  - Cardiac failure [Recovering/Resolving]
  - Dyspnoea [Not Recovered/Not Resolved]
  - Oedema peripheral [Not Recovered/Not Resolved]
  - Somnolence [Recovered/Resolved]
  - Drug ineffective [Unknown]
  - Product quality control issue [Unknown]
